FAERS Safety Report 10562523 (Version 1)
Quarter: 2014Q4

REPORT INFORMATION
  Report Type: Spontaneous
  Country: US (occurrence: None)
  Receive Date: 20141103
  Receipt Date: 20141103
  Transmission Date: 20150529
  Serious: No
  Sender: FDA-Public Use
  Company Number: None

PATIENT
  Age: 56 Year
  Sex: Female
  Weight: 64.86 kg

DRUGS (1)
  1. KETOCONAZOLE. [Suspect]
     Active Substance: KETOCONAZOLE
     Indication: TINEA INFECTION
     Dates: start: 20141006, end: 20141022

REACTIONS (2)
  - Throat tightness [None]
  - Dyspnoea [None]

NARRATIVE: CASE EVENT DATE: 20141030
